FAERS Safety Report 16270030 (Version 2)
Quarter: 2019Q2

REPORT INFORMATION
  Report Type: Spontaneous
  Country: JP (occurrence: JP)
  Receive Date: 20190503
  Receipt Date: 20190509
  Transmission Date: 20190711
  Serious: Yes (Other)
  Sender: FDA-Public Use
  Company Number: JP-PFIZER INC-2019190760

PATIENT
  Age: 27 Year
  Sex: Female

DRUGS (1)
  1. MEROPEN [Suspect]
     Active Substance: MEROPENEM
     Dosage: 1.5 G, DAILY
     Route: 041

REACTIONS (2)
  - Bone marrow failure [Unknown]
  - Anaemia [Unknown]
